FAERS Safety Report 16229631 (Version 1)
Quarter: 2019Q2

REPORT INFORMATION
  Report Type: Spontaneous
  Country: CN (occurrence: CN)
  Receive Date: 20190423
  Receipt Date: 20190423
  Transmission Date: 20190711
  Serious: Yes (Other)
  Sender: FDA-Public Use
  Company Number: CN-PFIZER INC-2019162618

PATIENT
  Age: 24 Year
  Sex: Female

DRUGS (4)
  1. OXYTOCIN. [Concomitant]
     Active Substance: OXYTOCIN
  2. MISOPROSTOL. [Suspect]
     Active Substance: MISOPROSTOL
     Indication: LABOUR INDUCTION
     Dosage: 0.2 MG, ONCE EVERY 3-4 HOURS FOR TOTAL 3 TIMES
     Route: 048
     Dates: start: 20160613
  3. MISOPROSTOL. [Suspect]
     Active Substance: MISOPROSTOL
     Dosage: 0.2 MG, UNK
     Route: 067
     Dates: start: 20160614
  4. MIFEPRISTONE [Suspect]
     Active Substance: MIFEPRISTONE
     Indication: LABOUR INDUCTION
     Dosage: 50 MG, ONCE EVERY 12 HOURS, THREE TIMES IN TOTAL
     Route: 048
     Dates: start: 20160611

REACTIONS (3)
  - Product use in unapproved indication [Unknown]
  - Urinary bladder rupture [Recovered/Resolved]
  - Uterine rupture [Recovered/Resolved]

NARRATIVE: CASE EVENT DATE: 20160613
